FAERS Safety Report 8774004 (Version 6)
Quarter: 2013Q3

REPORT INFORMATION
  Report Type: Report from Study
  Country: JP (occurrence: JP)
  Receive Date: 20120907
  Receipt Date: 20130910
  Transmission Date: 20140515
  Serious: Yes (Hospitalization, Other)
  Sender: FDA-Public Use
  Company Number: JP-VERTEX PHARMACEUTICAL INC.-2012-020738

PATIENT
  Age: 68 Year
  Sex: Female

DRUGS (8)
  1. VX-950 (TELAPREVIR) [Suspect]
     Indication: CHRONIC HEPATITIS C
     Dosage: 1500 MG, QD
     Route: 048
     Dates: start: 20120613, end: 20120828
  2. RIBAVIRIN [Suspect]
     Indication: CHRONIC HEPATITIS C
     Dosage: 400 MG, QD
     Route: 048
     Dates: start: 20120613, end: 20120703
  3. RIBAVIRIN [Suspect]
     Dosage: 300 MG, QD
     Route: 048
     Dates: start: 20120704, end: 20120814
  4. RIBAVIRIN [Suspect]
     Dosage: 200 MG, QD
     Route: 048
     Dates: start: 20120815, end: 20120828
  5. PEGINTERFERON ALFA-2B [Suspect]
     Indication: CHRONIC HEPATITIS C
     Dosage: 1.5 ?G/KG, QW
     Route: 058
     Dates: start: 20120613, end: 20120822
  6. AMLODIPINE [Concomitant]
     Dosage: 5 MG, QD
     Route: 048
     Dates: end: 20120828
  7. LOXONIN [Concomitant]
     Dosage: 3 DF, QD
     Route: 048
     Dates: start: 20120613, end: 20120828
  8. AMARYL [Concomitant]
     Dosage: 4 MG, QD
     Route: 048
     Dates: end: 20120828

REACTIONS (3)
  - Sepsis [Recovered/Resolved]
  - Pyelonephritis acute [Recovered/Resolved]
  - Haemoglobin decreased [Recovered/Resolved]
